FAERS Safety Report 20734839 (Version 2)
Quarter: 2022Q2

REPORT INFORMATION
  Report Type: Spontaneous
  Country: US (occurrence: None)
  Receive Date: 20220421
  Receipt Date: 20220528
  Transmission Date: 20220721
  Serious: No
  Sender: FDA-Public Use
  Company Number: 2022A149607

PATIENT
  Sex: Male
  Weight: 111.6 kg

DRUGS (2)
  1. BYDUREON BCISE [Suspect]
     Active Substance: EXENATIDE
     Indication: Diabetes mellitus
     Route: 058
  2. BYDUREON [Suspect]
     Active Substance: EXENATIDE
     Indication: Diabetes mellitus
     Route: 058

REACTIONS (5)
  - Vision blurred [Unknown]
  - Glycosylated haemoglobin increased [Unknown]
  - Glycosylated haemoglobin decreased [Unknown]
  - Insurance issue [Unknown]
  - Device leakage [Unknown]
